FAERS Safety Report 6253068-4 (Version None)
Quarter: 2009Q3

REPORT INFORMATION
  Report Type: 
  Country: None (occurrence: None)
  Receive Date: 20090701
  Receipt Date: 20090619
  Transmission Date: 20100115
  Serious: Yes (Hospitalization)
  Sender: FDA-Public Use
  Company Number: PHHO2009BR08027

PATIENT
  Sex: Male

DRUGS (16)
  1. CYCLOSPORINE [Suspect]
     Indication: RENAL TRANSPLANT
     Dosage: 200 MG, BID
     Route: 048
     Dates: start: 20030313
  2. CYCLOSPORINE [Suspect]
     Dosage: 87.5 MG, BID
     Route: 048
     Dates: start: 20040317
  3. MYCOPHENOLATE MOFETIL [Suspect]
     Indication: RENAL TRANSPLANT
     Dosage: 500MG 2 XPER 2 DAY
     Route: 048
     Dates: start: 20030313, end: 20030729
  4. MYCOPHENOLATE MOFETIL [Suspect]
     Dosage: 1 G, BID
     Route: 048
     Dates: start: 20030730
  5. DACLIZUMAB [Suspect]
     Indication: RENAL TRANSPLANT
     Dosage: 25 MG, UNK
     Route: 042
  6. METHYLPREDNISOLONE [Suspect]
     Indication: RENAL TRANSPLANT
     Dosage: 125 MG, QD
     Route: 042
     Dates: start: 20030313, end: 20030321
  7. PREDNISONE [Suspect]
     Indication: RENAL TRANSPLANT
     Dosage: 5 MG, QD
     Route: 048
  8. TACROLIMUS [Suspect]
     Indication: RENAL TRANSPLANT
  9. SIROLIMUS [Suspect]
     Indication: RENAL TRANSPLANT
  10. AMOXICILINA [Concomitant]
  11. CAPTOPRIL [Concomitant]
  12. CEFOTAXIME [Concomitant]
  13. METHYLDOPA [Concomitant]
  14. MINOXIDIL [Concomitant]
  15. NIFEDIPINE [Concomitant]
  16. PROPRANOLOL HYDROCHLORIDE [Concomitant]

REACTIONS (2)
  - DIARRHOEA [None]
  - HEPATITIS [None]
